FAERS Safety Report 19446827 (Version 1)
Quarter: 2021Q2

REPORT INFORMATION
  Report Type: Spontaneous
  Country: GB (occurrence: GB)
  Receive Date: 20210622
  Receipt Date: 20210622
  Transmission Date: 20210717
  Serious: Yes (Disabling, Other)
  Sender: FDA-Public Use
  Company Number: GB-TEVA-2021-GB-1923781

PATIENT
  Age: 50 Year
  Sex: Male
  Weight: 87 kg

DRUGS (1)
  1. RAMIPRIL. [Suspect]
     Active Substance: RAMIPRIL
     Route: 065

REACTIONS (4)
  - Mitral valve incompetence [Recovering/Resolving]
  - Dyspnoea [Recovering/Resolving]
  - Dizziness [Recovering/Resolving]
  - Dizziness [Recovered/Resolved with Sequelae]

NARRATIVE: CASE EVENT DATE: 20210429
